FAERS Safety Report 19642587 (Version 2)
Quarter: 2021Q4

REPORT INFORMATION
  Report Type: Spontaneous
  Country: ES (occurrence: ES)
  Receive Date: 20210730
  Receipt Date: 20211011
  Transmission Date: 20220303
  Serious: Yes (Hospitalization, Other)
  Sender: FDA-Public Use
  Company Number: ES-009507513-2107ESP002062

PATIENT
  Age: 53 Year
  Sex: Male
  Weight: 77 kg

DRUGS (2)
  1. AXITINIB [Suspect]
     Active Substance: AXITINIB
     Indication: Clear cell renal cell carcinoma
     Dosage: 7 MG, 2X/DAY (EVERY 12 HOURS)
     Route: 048
     Dates: start: 20201113
  2. PEMBROLIZUMAB [Suspect]
     Active Substance: PEMBROLIZUMAB
     Indication: Clear cell renal cell carcinoma
     Dosage: 2 MG/KG, EVERY 3 WEEKS (2 MG/KG, IV, EVERY 21 DAYS)
     Route: 042
     Dates: start: 20201113, end: 20210115

REACTIONS (2)
  - Immune-mediated hepatic disorder [Recovered/Resolved]
  - Drug-induced liver injury [Recovered/Resolved]

NARRATIVE: CASE EVENT DATE: 20210115
